FAERS Safety Report 5313953-4 (Version None)
Quarter: 2007Q2

REPORT INFORMATION
  Report Type: 
  Country: None (occurrence: None)
  Receive Date: 20070501
  Receipt Date: 20070419
  Transmission Date: 20071010
  Serious: Yes (Other)
  Sender: FDA-Public Use
  Company Number: US-PFIZER INC-2007022393

PATIENT
  Sex: Female
  Weight: 59 kg

DRUGS (4)
  1. LIPITOR [Suspect]
     Indication: BLOOD CHOLESTEROL INCREASED
  2. OMEGA 3 [Concomitant]
  3. VITAMINS [Concomitant]
  4. CALCIUM CHLORIDE [Concomitant]

REACTIONS (11)
  - AMNESIA [None]
  - CHEST PAIN [None]
  - DRUG DOSE OMISSION [None]
  - FIBROMYALGIA [None]
  - HEADACHE [None]
  - HYPERLIPIDAEMIA [None]
  - IRRITABLE BOWEL SYNDROME [None]
  - NECK PAIN [None]
  - OSTEOARTHRITIS [None]
  - SINUSITIS [None]
  - UPPER GASTROINTESTINAL HAEMORRHAGE [None]
